FAERS Safety Report 12857388 (Version 1)
Quarter: 2016Q4

REPORT INFORMATION
  Report Type: Spontaneous
  Country: FR (occurrence: FR)
  Receive Date: 20161018
  Receipt Date: 20161018
  Transmission Date: 20170207
  Serious: Yes (Other)
  Sender: FDA-Public Use
  Company Number: PHHY2016FR141952

PATIENT
  Age: 32 Year
  Sex: Male

DRUGS (1)
  1. RITALINE [Suspect]
     Active Substance: METHYLPHENIDATE HYDROCHLORIDE
     Indication: ATTENTION DEFICIT/HYPERACTIVITY DISORDER
     Dosage: 560 MG, QD (ONE EPISODE AT 560MG/24H)
     Route: 042

REACTIONS (5)
  - Poisoning [Unknown]
  - Hallucination [Unknown]
  - Suicidal ideation [Unknown]
  - Agitation [Unknown]
  - Delirium [Unknown]
